FAERS Safety Report 24093921 (Version 1)
Quarter: 2024Q3

REPORT INFORMATION
  Report Type: Report from Study
  Country: GB (occurrence: GB)
  Receive Date: 20240716
  Receipt Date: 20240716
  Transmission Date: 20241016
  Serious: Yes (Other)
  Sender: JOHNSON AND JOHNSON
  Company Number: GB-JNJFOC-20240728795

PATIENT
  Age: 61 Year
  Sex: Male

DRUGS (1)
  1. ERLEADA [Suspect]
     Active Substance: APALUTAMIDE
     Indication: Prostate cancer
     Route: 048
     Dates: start: 20240410, end: 20240710

REACTIONS (3)
  - Peripheral swelling [Unknown]
  - Erythema [Unknown]
  - Feeling hot [Unknown]

NARRATIVE: CASE EVENT DATE: 20240707
